FAERS Safety Report 15171980 (Version 1)
Quarter: 2018Q3

REPORT INFORMATION
  Report Type: Spontaneous
  Country: FR (occurrence: FR)
  Receive Date: 20180720
  Receipt Date: 20180720
  Transmission Date: 20181010
  Serious: Yes (Other)
  Sender: FDA-Public Use
  Company Number: FR-TEVA-2018-FR-929347

PATIENT
  Age: 72 Year
  Sex: Female
  Weight: 69.9 kg

DRUGS (8)
  1. AMOXICILLIN. [Suspect]
     Active Substance: AMOXICILLIN
     Indication: PRODUCT USED FOR UNKNOWN INDICATION
     Route: 048
     Dates: start: 20170310, end: 20170310
  2. LOGIMAX [Concomitant]
     Active Substance: FELODIPINE\METOPROLOL SUCCINATE
  3. DUORESP SPIROMAX [Suspect]
     Active Substance: BUDESONIDE\FORMOTEROL
     Route: 065
  4. LEXOMIL ROCHE [Concomitant]
     Active Substance: BROMAZEPAM
  5. AIROMIR [Concomitant]
     Active Substance: ALBUTEROL SULFATE
  6. LAROXYL [Concomitant]
     Active Substance: AMITRIPTYLINE HYDROCHLORIDE
  7. INEXIUM [Concomitant]
     Active Substance: ESOMEPRAZOLE
  8. PIASCLEDINE [Concomitant]
     Active Substance: AVOCADO OIL\SOYBEAN OIL

REACTIONS (5)
  - Hyperhidrosis [Recovered/Resolved]
  - Tremor [Recovered/Resolved]
  - Malaise [Recovered/Resolved]
  - Diarrhoea [Recovered/Resolved]
  - Pruritus generalised [Recovered/Resolved]

NARRATIVE: CASE EVENT DATE: 20170311
